FAERS Safety Report 7088185-2 (Version None)
Quarter: 2010Q4

REPORT INFORMATION
  Report Type: 
  Country: None (occurrence: None)
  Receive Date: 20101028
  Receipt Date: 20101015
  Transmission Date: 20110411
  Serious: Yes (Hospitalization)
  Sender: FDA-Public Use
  Company Number: UTC-001601

PATIENT
  Age: 69 Year
  Sex: Female
  Weight: 97.3 kg

DRUGS (2)
  1. TYVASO [Suspect]
     Dosage: 216 MCG (54 MCG, 4 IN 1 D), INHALATION
     Route: 055
     Dates: start: 20091009
  2. LETAIRIS (AMBRISENTAN) [Concomitant]

REACTIONS (1)
  - ASCITES [None]
